FAERS Safety Report 24380214 (Version 2)
Quarter: 2025Q2

REPORT INFORMATION
  Report Type: Report from Study
  Country: CA (occurrence: CA)
  Receive Date: 20240930
  Receipt Date: 20250523
  Transmission Date: 20250717
  Serious: No
  Sender: TAKEDA
  Company Number: CA-TAKEDA-2024TUS094980

PATIENT
  Age: 63 Year
  Sex: Female

DRUGS (1)
  1. VEDOLIZUMAB [Suspect]
     Active Substance: VEDOLIZUMAB
     Indication: Crohn^s disease
     Dosage: 300 MILLIGRAM, Q4WEEKS
     Dates: start: 20220511

REACTIONS (2)
  - No adverse event [Unknown]
  - Off label use [Unknown]

NARRATIVE: CASE EVENT DATE: 20220511
